FAERS Safety Report 8373271-7 (Version None)
Quarter: 2012Q2

REPORT INFORMATION
  Report Type: 
  Country: None (occurrence: None)
  Receive Date: 20120521
  Receipt Date: 20120507
  Transmission Date: 20120825
  Serious: Yes (Hospitalization, Other)
  Sender: FDA-Public Use
  Company Number: FR-NOVEN-12FR004614

PATIENT
  Age: 9 Year
  Sex: Male
  Weight: 30 kg

DRUGS (3)
  1. RISPERIDONE [Concomitant]
     Indication: AGGRESSION
     Dosage: 2 MG, QD
     Route: 065
  2. DAYTRANA [Suspect]
     Indication: AGGRESSION
     Dosage: 20 MG, QD
     Route: 065
  3. DAYTRANA [Suspect]
     Dosage: 36 MG, QD
     Route: 065

REACTIONS (4)
  - DEHYDRATION [None]
  - BLOOD CREATINE PHOSPHOKINASE INCREASED [None]
  - HYPERTHERMIA [None]
  - DYSTONIA [None]
